FAERS Safety Report 19077888 (Version 1)
Quarter: 2021Q1

REPORT INFORMATION
  Report Type: Spontaneous
  Country: US (occurrence: US)
  Receive Date: 20210330
  Receipt Date: 20210330
  Transmission Date: 20210420
  Serious: Yes (Death, Hospitalization)
  Sender: FDA-Public Use
  Company Number: None

PATIENT
  Age: 79 Year
  Sex: Male

DRUGS (1)
  1. ESBRIET [Suspect]
     Active Substance: PIRFENIDONE
     Indication: IDIOPATHIC PULMONARY FIBROSIS
     Route: 048
     Dates: start: 20201127, end: 20210327

REACTIONS (6)
  - Oxygen saturation decreased [None]
  - Fluid overload [None]
  - Pulmonary embolism [None]
  - Pneumonia [None]
  - Dyspnoea [None]
  - Right ventricular failure [None]

NARRATIVE: CASE EVENT DATE: 20210328
